FAERS Safety Report 23114742 (Version 1)
Quarter: 2023Q4

REPORT INFORMATION
  Report Type: Spontaneous
  Country: IN (occurrence: IN)
  Receive Date: 20231027
  Receipt Date: 20231027
  Transmission Date: 20240109
  Serious: Yes (Other)
  Sender: FDA-Public Use
  Company Number: IN-FreseniusKabi-FK202317108

PATIENT
  Age: 12 Year
  Sex: Male

DRUGS (1)
  1. PROPOFOL [Suspect]
     Active Substance: PROPOFOL
     Indication: Induction of anaesthesia
     Route: 065

REACTIONS (4)
  - Chromaturia [Recovered/Resolved]
  - Methaemoglobinaemia [Recovered/Resolved]
  - Serum colour abnormal [Recovered/Resolved]
  - Unevaluable event [Recovered/Resolved]
